FAERS Safety Report 12740255 (Version 3)
Quarter: 2016Q4

REPORT INFORMATION
  Report Type: Spontaneous
  Country: US (occurrence: US)
  Receive Date: 20160913
  Receipt Date: 20161024
  Transmission Date: 20170207
  Serious: Yes (Death, Hospitalization, Other)
  Sender: FDA-Public Use
  Company Number: US-INCYTE CORPORATION-2016IN005766

PATIENT
  Age: 59 Year
  Sex: Female
  Weight: 40 kg

DRUGS (4)
  1. CENTRUM                            /07419501/ [Concomitant]
     Active Substance: MINERALS\VITAMINS
     Indication: PRODUCT USED FOR UNKNOWN INDICATION
  2. VITAMIN C [Concomitant]
     Active Substance: ASCORBIC ACID
     Indication: PRODUCT USED FOR UNKNOWN INDICATION
  3. JAKAFI [Suspect]
     Active Substance: RUXOLITINIB
     Indication: PRIMARY MYELOFIBROSIS
     Dosage: 5 MG, BID
     Route: 048
     Dates: start: 20160622, end: 20160825
  4. VITAMIN B12 [Concomitant]
     Active Substance: CYANOCOBALAMIN
     Indication: PRODUCT USED FOR UNKNOWN INDICATION

REACTIONS (10)
  - Pyrexia [Unknown]
  - Tachycardia [Unknown]
  - Hypotension [Unknown]
  - Oxygen saturation decreased [Unknown]
  - Fatigue [Unknown]
  - Hypercalcaemia [Unknown]
  - Septic shock [Unknown]
  - Cardiac arrest [Fatal]
  - Asthenia [Unknown]
  - Troponin increased [Unknown]

NARRATIVE: CASE EVENT DATE: 20160824
